FAERS Safety Report 6804156-2 (Version None)
Quarter: 2010Q2

REPORT INFORMATION
  Report Type: 
  Country: None (occurrence: None)
  Receive Date: 20100628
  Receipt Date: 20070807
  Transmission Date: 20101027
  Serious: Yes (Other)
  Sender: FDA-Public Use
  Company Number: US-PFIZER INC-2006110651

PATIENT
  Sex: Female
  Weight: 70.31 kg

DRUGS (9)
  1. GENOTROPIN [Suspect]
     Indication: HYPOPITUITARISM
     Route: 058
     Dates: start: 20060201, end: 20060501
  2. GENOTROPIN [Suspect]
     Route: 058
     Dates: start: 20060901
  3. BUTAMIRATE CITRATE [Concomitant]
  4. LEXAPRO [Concomitant]
  5. EVISTA [Concomitant]
  6. ANTIDEPRESSANTS [Concomitant]
  7. DRUG, UNSPECIFIED [Concomitant]
  8. WELLBUTRIN [Concomitant]
  9. TEGRETOL [Concomitant]

REACTIONS (1)
  - NEUROPATHY PERIPHERAL [None]
